FAERS Safety Report 5831881-2 (Version None)
Quarter: 2008Q3

REPORT INFORMATION
  Report Type: 
  Country: None (occurrence: None)
  Receive Date: 20080804
  Receipt Date: 20080721
  Transmission Date: 20090109
  Serious: Yes (Other)
  Sender: FDA-Public Use
  Company Number: US-ELI_LILLY_AND_COMPANY-US200806001577

PATIENT
  Sex: Female
  Weight: 51.247 kg

DRUGS (4)
  1. STRATTERA [Suspect]
     Indication: ATTENTION DEFICIT/HYPERACTIVITY DISORDER
     Dosage: 40 MG, UNK
     Dates: start: 20030201
  2. STRATTERA [Suspect]
     Dosage: 60 MG, DAILY (1/D)
     Route: 048
     Dates: start: 20060104
  3. STRATTERA [Suspect]
     Dosage: 80 MG, DAILY (1/D)
     Route: 048
  4. LITHIUM [Concomitant]
     Dosage: UNK, UNK
     Dates: start: 20070716, end: 20080101

REACTIONS (1)
  - CONFUSIONAL STATE [None]
